FAERS Safety Report 8105578-2 (Version None)
Quarter: 2012Q1

REPORT INFORMATION
  Report Type: 
  Country: None (occurrence: None)
  Receive Date: 20120201
  Receipt Date: 20111205
  Transmission Date: 20120608
  Serious: Yes (Death)
  Sender: FDA-Public Use
  Company Number: NO-ARROW GEN-2011-21771

PATIENT
  Age: 7 Year
  Sex: Female

DRUGS (2)
  1. LAMOTRIGINE [Suspect]
     Indication: EPILEPSY
     Dosage: 200 MG, UNK
  2. NITRAZEPAM [Suspect]
     Indication: EPILEPSY
     Dosage: 7.5 MG, UNK

REACTIONS (2)
  - ASPIRATION [None]
  - SUDDEN UNEXPLAINED DEATH IN EPILEPSY [None]
